FAERS Safety Report 8437006-1 (Version None)
Quarter: 2012Q2

REPORT INFORMATION
  Report Type: 
  Country: None (occurrence: None)
  Receive Date: 20120614
  Receipt Date: 20111222
  Transmission Date: 20120825
  Serious: No
  Sender: FDA-Public Use
  Company Number: US-AMGEN-USASP2011068542

PATIENT
  Sex: Female
  Weight: 100.7 kg

DRUGS (2)
  1. ASPIRIN [Concomitant]
  2. ARANESP [Suspect]
     Indication: ANAEMIA
     Dosage: UNK
     Dates: start: 20110901

REACTIONS (3)
  - ANXIETY [None]
  - HYPERPHAGIA [None]
  - WEIGHT INCREASED [None]
